FAERS Safety Report 7593968-6 (Version None)
Quarter: 2011Q3

REPORT INFORMATION
  Report Type: 
  Country: None (occurrence: None)
  Receive Date: 20110706
  Receipt Date: 20110624
  Transmission Date: 20111222
  Serious: Yes (Hospitalization)
  Sender: FDA-Public Use
  Company Number: TR-BAYER-2011-030778

PATIENT
  Age: 18 Year
  Sex: Female

DRUGS (4)
  1. INTERFERON BETA-1B [Suspect]
     Indication: MULTIPLE SCLEROSIS
     Dosage: 8 MIU, QOD
     Route: 058
     Dates: start: 20100712
  2. ESCITALOPRAM [Concomitant]
     Dosage: UNK
     Route: 048
     Dates: start: 20101102
  3. FAMODIN [Concomitant]
     Dosage: UNK
     Route: 048
  4. CAL-D-VITA [Concomitant]
     Dosage: UNK
     Route: 048

REACTIONS (1)
  - BIPOLAR DISORDER [None]
